FAERS Safety Report 5448954-9 (Version None)
Quarter: 2007Q3

REPORT INFORMATION
  Report Type: 
  Country: None (occurrence: None)
  Receive Date: 20070911
  Receipt Date: 20070905
  Transmission Date: 20080115
  Serious: Yes (Hospitalization)
  Sender: FDA-Public Use
  Company Number: US-ELI_LILLY_AND_COMPANY-US200707002647

PATIENT
  Age: 46 Year
  Sex: Female
  Weight: 51.7 kg

DRUGS (2)
  1. FORTEO [Suspect]
     Indication: OSTEOPOROSIS
     Dosage: 20 UG, DAILY (1/D)
     Dates: start: 20070430
  2. FORTEO [Suspect]
     Dates: start: 20070701, end: 20070701

REACTIONS (6)
  - ACCIDENTAL OVERDOSE [None]
  - ASTHMA [None]
  - MEDICATION ERROR [None]
  - MULTIPLE SCLEROSIS [None]
  - MUSCLE SPASMS [None]
  - PAIN [None]
